FAERS Safety Report 4683086-9 (Version None)
Quarter: 2005Q2

REPORT INFORMATION
  Report Type: 
  Country: None (occurrence: None)
  Receive Date: 20050602
  Receipt Date: 20050211
  Transmission Date: 20051028
  Serious: No
  Sender: FDA-Public Use
  Company Number: USA050290673

PATIENT
  Age: 45 Year
  Sex: Female

DRUGS (4)
  1. CYMBALTA [Suspect]
     Indication: POST-TRAUMATIC STRESS DISORDER
     Dosage: 30 MG DAY
     Dates: start: 20040901
  2. PULMICORT [Concomitant]
  3. BENADRYL [Concomitant]
  4. XANAX (ALPRAZOLAM DUM) [Concomitant]

REACTIONS (16)
  - DIZZINESS [None]
  - DRY EYE [None]
  - DYSMENORRHOEA [None]
  - DYSURIA [None]
  - EYE IRRITATION [None]
  - FACE OEDEMA [None]
  - HEADACHE [None]
  - HYPERHIDROSIS [None]
  - MENORRHAGIA [None]
  - NAUSEA [None]
  - NIGHTMARE [None]
  - PAIN [None]
  - PANIC REACTION [None]
  - POLLAKIURIA [None]
  - URINARY RETENTION [None]
  - VISION BLURRED [None]
